FAERS Safety Report 8377062-2 (Version None)
Quarter: 2012Q2

REPORT INFORMATION
  Report Type: 
  Country: None (occurrence: None)
  Receive Date: 20120522
  Receipt Date: 20120514
  Transmission Date: 20120825
  Serious: Yes (Life-Threatening, Hospitalization)
  Sender: FDA-Public Use
  Company Number: GR-TEVA-335695ISR

PATIENT
  Age: 55 Year
  Sex: Male

DRUGS (4)
  1. CARVEDILOL [Concomitant]
     Dosage: 6.25 MILLIGRAM;
  2. CIPROFLOXACIN [Suspect]
     Indication: URINARY TRACT INFECTION
  3. SIMVASTATIN [Interacting]
     Dosage: 40 MILLIGRAM;
  4. RAMIPRIL [Concomitant]
     Dosage: 5 MILLIGRAM;

REACTIONS (2)
  - RHABDOMYOLYSIS [None]
  - DRUG INTERACTION [None]
